FAERS Safety Report 15699810 (Version 2)
Quarter: 2018Q4

REPORT INFORMATION
  Report Type: Spontaneous
  Country: AT (occurrence: AT)
  Receive Date: 20181207
  Receipt Date: 20181214
  Transmission Date: 20190205
  Serious: Yes (Other)
  Sender: FDA-Public Use
  Company Number: AT-CELGENEUS-AUT-20181110394

PATIENT
  Age: 56 Year
  Sex: Male

DRUGS (3)
  1. OTEZLA [Suspect]
     Active Substance: APREMILAST
     Route: 048
     Dates: start: 201810, end: 201811
  2. OTEZLA [Suspect]
     Active Substance: APREMILAST
     Dosage: DOSE REDUCED
     Route: 048
     Dates: start: 2018
  3. OTEZLA [Suspect]
     Active Substance: APREMILAST
     Indication: PSORIASIS
     Route: 048
     Dates: start: 201809, end: 201811

REACTIONS (1)
  - Idiopathic intracranial hypertension [Recovered/Resolved]

NARRATIVE: CASE EVENT DATE: 2018
